FAERS Safety Report 24120360 (Version 1)
Quarter: 2024Q3

REPORT INFORMATION
  Report Type: Spontaneous
  Country: US (occurrence: US)
  Receive Date: 20240722
  Receipt Date: 20240722
  Transmission Date: 20241017
  Serious: Yes (Hospitalization, Other)
  Sender: MEITHEAL PHARMACEUTICALS
  Company Number: US-MEITHEAL-2024MPLIT00210

PATIENT
  Age: 5 Month
  Sex: Female

DRUGS (8)
  1. DACTINOMYCIN [Suspect]
     Active Substance: DACTINOMYCIN
     Indication: Primitive neuroectodermal tumour
     Dosage: ON DAYS 1, 2, 3, 4, AND 5 OF WEEK 16
     Route: 042
  2. TOPOTECAN [Suspect]
     Active Substance: TOPOTECAN HYDROCHLORIDE
     Indication: Primitive neuroectodermal tumour
     Dosage: ADMINISTERED ON DAY 1 OF WEEKS 1, 2, 4, 7, AND 13
     Route: 037
  3. ETOPOSIDE [Suspect]
     Active Substance: ETOPOSIDE
     Indication: Primitive neuroectodermal tumour
     Dosage: WAS ADMINISTERED ON DAYS 1, 2, AND 3 OF WEEKS 4, 7, AND 10
     Route: 042
  4. VINCRISTINE [Suspect]
     Active Substance: VINCRISTINE
     Indication: Primitive neuroectodermal tumour
     Dosage: ON DAY 1 OF WEEKS 1-13 AND WEEK 16 OF THERAPY
     Route: 042
  5. CISPLATIN [Suspect]
     Active Substance: CISPLATIN
     Indication: Primitive neuroectodermal tumour
     Dosage: ADMINISTERED ON DAY 1 OF WEEKS 1, 4, 7, AND 10.
     Route: 042
  6. DOXORUBICIN [Suspect]
     Active Substance: DOXORUBICIN
     Indication: Primitive neuroectodermal tumour
     Dosage: OVER THE COURSE OF 48 H AND ADMINISTERED ON DAYS 2 AND 3 OF WEEKS 1, 4, AND 13
     Route: 042
  7. CYCLOPHOSPHAMIDE [Suspect]
     Active Substance: CYCLOPHOSPHAMIDE
     Indication: Primitive neuroectodermal tumour
     Dosage: INFUSION OVER THE COURSE OF 72 H AND ADMINISTERED ON DAYS 2, 3, AND 4 OF WEEKS 1, 13, AND 16
     Route: 042
  8. CYCLOPHOSPHAMIDE [Suspect]
     Active Substance: CYCLOPHOSPHAMIDE
     Dosage: ADMINISTERED ON DAY 2 OF WEEKS 7 AND 10
     Route: 042

REACTIONS (1)
  - Venoocclusive liver disease [Recovered/Resolved]
